FAERS Safety Report 13603577 (Version 1)
Quarter: 2017Q2

REPORT INFORMATION
  Report Type: Spontaneous
  Country: US (occurrence: US)
  Receive Date: 20170601
  Receipt Date: 20170601
  Transmission Date: 20170830
  Serious: No
  Sender: FDA-Public Use
  Company Number: US-LEXICON PHARMACEUTICALS, INC-17-1606-00179

PATIENT
  Sex: Male

DRUGS (19)
  1. FINASTERIDE. [Concomitant]
     Active Substance: FINASTERIDE
  2. LISINOPRIL. [Concomitant]
     Active Substance: LISINOPRIL
  3. METOPROLOL. [Concomitant]
     Active Substance: METOPROLOL
  4. POTASSIUM CITRATE. [Concomitant]
     Active Substance: POTASSIUM CITRATE
  5. SODIUM CHLORIDE. [Concomitant]
     Active Substance: SODIUM CHLORIDE
  6. SPIRONOLACT [Concomitant]
  7. TAMSULOSIN [Concomitant]
     Active Substance: TAMSULOSIN
  8. MIRALAX [Concomitant]
     Active Substance: POLYETHYLENE GLYCOL 3350
  9. AFINITOR [Concomitant]
     Active Substance: EVEROLIMUS
  10. OXYBUTYNIN [Concomitant]
     Active Substance: OXYBUTYNIN
  11. ACETAMIN [Concomitant]
     Active Substance: ACETAMINOPHEN
  12. TRAMADOL. [Concomitant]
     Active Substance: TRAMADOL
  13. VANCOCIN [Concomitant]
     Active Substance: VANCOMYCIN HYDROCHLORIDE
  14. TELOTRISTAT ETHYL [Suspect]
     Active Substance: TELOTRISTAT ETHYL
     Indication: CARCINOID SYNDROME
     Route: 048
     Dates: start: 20170315
  15. IBUPROFEN. [Concomitant]
     Active Substance: IBUPROFEN
  16. SANDOSTATIN LAR DEPOT [Concomitant]
     Active Substance: OCTREOTIDE ACETATE
  17. TIMOLOL. [Concomitant]
     Active Substance: TIMOLOL
  18. IMODIUM [Concomitant]
     Active Substance: LOPERAMIDE HYDROCHLORIDE
  19. SENOKOT [Concomitant]
     Active Substance: SENNOSIDES

REACTIONS (3)
  - Frequent bowel movements [Not Recovered/Not Resolved]
  - Insomnia [Not Recovered/Not Resolved]
  - Fatigue [Not Recovered/Not Resolved]

NARRATIVE: CASE EVENT DATE: 2017
